FAERS Safety Report 5054747-7 (Version None)
Quarter: 2006Q2

REPORT INFORMATION
  Report Type: 
  Country: None (occurrence: None)
  Receive Date: 20060614
  Receipt Date: 20060413
  Transmission Date: 20061013
  Serious: No
  Sender: FDA-Public Use
  Company Number: US_0403101818

PATIENT
  Age: 66 Year
  Sex: Male
  Weight: 80.5 kg

DRUGS (7)
  1. CIALIS [Suspect]
     Dosage: SEE IMAGE
     Route: 048
     Dates: start: 20040201
  2. CIALIS [Suspect]
     Dosage: SEE IMAGE
     Route: 048
     Dates: start: 20050401
  3. LIPITOR [Concomitant]
  4. PLAVIX [Concomitant]
  5. LISINOPRIL [Concomitant]
  6. METOPROLOL (METOPROLOL) [Concomitant]
  7. VITAMIN E [Concomitant]

REACTIONS (1)
  - THERAPEUTIC RESPONSE DECREASED [None]
